FAERS Safety Report 25439139 (Version 2)
Quarter: 2025Q2

REPORT INFORMATION
  Report Type: Spontaneous
  Country: US (occurrence: US)
  Receive Date: 20250616
  Receipt Date: 20250617
  Transmission Date: 20250717
  Serious: No
  Sender: SANOFI AVENTIS
  Company Number: US-SA-2025SA169579

PATIENT
  Age: 58 Year
  Sex: Female

DRUGS (16)
  1. DUPIXENT [Suspect]
     Active Substance: DUPILUMAB
     Indication: Asthma
     Route: 058
     Dates: start: 20220126
  2. OXYBUTYNIN [Concomitant]
     Active Substance: OXYBUTYNIN
  3. MONTELUKAST [Concomitant]
     Active Substance: MONTELUKAST
  4. CALCIUM [Concomitant]
     Active Substance: CALCIUM
  5. HYDROCORTISONE [Concomitant]
     Active Substance: HYDROCORTISONE
  6. VITREXYL [Concomitant]
     Active Substance: .ALPHA.-TOCOPHEROL ACETATE, DL-\ASCORBIC ACID\CALCIUM CARBONATE\CHOLECALCIFEROL\CHROMIUM NICOTINATE\
  7. LISINOPRIL [Concomitant]
     Active Substance: LISINOPRIL
  8. CLARITIN [Concomitant]
     Active Substance: LORATADINE
  9. SINGULAIR [Concomitant]
     Active Substance: MONTELUKAST SODIUM
  10. BUDESONIDE [Concomitant]
     Active Substance: BUDESONIDE
  11. AZITHROMYCIN [Concomitant]
     Active Substance: AZITHROMYCIN
  12. DEXAMETHASONE [Concomitant]
     Active Substance: DEXAMETHASONE
  13. BETAMETHASONE [Concomitant]
     Active Substance: BETAMETHASONE
  14. VALTREX [Concomitant]
     Active Substance: VALACYCLOVIR HYDROCHLORIDE
  15. ESTROGEL [Concomitant]
     Active Substance: ESTRADIOL
  16. VITAMIN D3 [Concomitant]
     Active Substance: CHOLECALCIFEROL

REACTIONS (2)
  - Fear of injection [Unknown]
  - Injection site pain [Unknown]

NARRATIVE: CASE EVENT DATE: 20250612
